FAERS Safety Report 24858282 (Version 1)
Quarter: 2025Q1

REPORT INFORMATION
  Report Type: Spontaneous
  Country: US (occurrence: None)
  Receive Date: 20250115
  Receipt Date: 20250115
  Transmission Date: 20250408
  Serious: Yes (Other)
  Sender: FDA-CTU
  Company Number: None

PATIENT
  Age: 25 Year
  Sex: Female

DRUGS (2)
  1. DEVICE [Suspect]
     Active Substance: DEVICE
  2. HYDROMORPHONE [Suspect]
     Active Substance: HYDROMORPHONE

REACTIONS (2)
  - Confusional state [None]
  - Wrong technique in device usage process [None]

NARRATIVE: CASE EVENT DATE: 20250102
